FAERS Safety Report 21623046 (Version 1)
Quarter: 2022Q4

REPORT INFORMATION
  Report Type: Spontaneous
  Country: DE (occurrence: DE)
  Receive Date: 20221121
  Receipt Date: 20221121
  Transmission Date: 20230113
  Serious: Yes (Other)
  Sender: FDA-Public Use
  Company Number: DE-TAKEDA-2022TUS085249

PATIENT
  Age: 19 Year
  Sex: Male

DRUGS (1)
  1. LISDEXAMFETAMINE DIMESYLATE [Suspect]
     Active Substance: LISDEXAMFETAMINE DIMESYLATE
     Indication: Attention deficit hyperactivity disorder
     Dosage: 60 MILLIGRAM
     Route: 065

REACTIONS (6)
  - Pupil fixed [Unknown]
  - Ocular hyperaemia [Unknown]
  - Toxicity to various agents [Unknown]
  - Amphetamines positive [Unknown]
  - Eye movement disorder [Unknown]
  - Photophobia [Unknown]
